FAERS Safety Report 10082092 (Version 1)
Quarter: 2014Q2

REPORT INFORMATION
  Report Type: Spontaneous
  Country: NO (occurrence: NO)
  Receive Date: 20140416
  Receipt Date: 20140416
  Transmission Date: 20141212
  Serious: Yes (Other)
  Sender: FDA-Public Use
  Company Number: NO-BRISTOL-MYERS SQUIBB COMPANY-20621546

PATIENT
  Sex: Female

DRUGS (2)
  1. METFORMIN HCL [Suspect]
     Indication: TYPE 2 DIABETES MELLITUS
  2. ATACAND [Concomitant]
     Indication: BLOOD PRESSURE

REACTIONS (9)
  - Joint swelling [Recovered/Resolved]
  - Gait disturbance [Unknown]
  - Insomnia [Unknown]
  - Fatigue [Unknown]
  - Arthralgia [Recovered/Resolved]
  - Drug effect incomplete [Unknown]
  - Blood urine present [Unknown]
  - Myalgia [Recovered/Resolved]
  - Diarrhoea [Recovered/Resolved]
